FAERS Safety Report 8064033-9 (Version None)
Quarter: 2012Q1

REPORT INFORMATION
  Report Type: 
  Country: None (occurrence: None)
  Receive Date: 20120123
  Receipt Date: 20120118
  Transmission Date: 20120608
  Serious: Yes (Hospitalization)
  Sender: FDA-Public Use
  Company Number: ES-PFIZER INC-2009289492

PATIENT
  Age: 89 Year
  Sex: Female

DRUGS (3)
  1. ALLOPURINOL [Interacting]
     Indication: HYPERURICAEMIA
     Dosage: 300 MG, DAILY
     Route: 048
     Dates: start: 20010101, end: 20051005
  2. ALDACTONE [Suspect]
     Indication: HYPERTENSION
     Dosage: 25 MG, 1X/DAY
     Route: 048
     Dates: start: 20010101, end: 20051005
  3. RAMIPRIL [Interacting]
     Dosage: 5 MG, DAILY
     Route: 048
     Dates: start: 20010101, end: 20051005

REACTIONS (2)
  - HYPERKALAEMIA [None]
  - DRUG INTERACTION [None]
